FAERS Safety Report 23652164 (Version 1)
Quarter: 2024Q1

REPORT INFORMATION
  Report Type: Spontaneous
  Country: US (occurrence: US)
  Receive Date: 20240320
  Receipt Date: 20240320
  Transmission Date: 20240409
  Serious: No
  Sender: FDA-Public Use
  Company Number: US-SA-SAC20240319000455

PATIENT
  Age: 80 Year
  Sex: Male

DRUGS (1)
  1. KEVZARA [Suspect]
     Active Substance: SARILUMAB
     Indication: Giant cell arteritis
     Dosage: 200 MG, QOW
     Route: 058

REACTIONS (1)
  - Off label use [Unknown]
